FAERS Safety Report 9933812 (Version 1)
Quarter: 2014Q1

REPORT INFORMATION
  Report Type: Spontaneous
  Country: US (occurrence: US)
  Receive Date: 20140228
  Receipt Date: 20140228
  Transmission Date: 20141002
  Serious: No
  Sender: FDA-Public Use
  Company Number: US-ABBVIE-13P-163-1181997-00

PATIENT
  Age: 55 Year
  Sex: Male
  Weight: 68.1 kg

DRUGS (3)
  1. ANDROGEL [Suspect]
     Indication: BLOOD TESTOSTERONE DECREASED
     Dates: start: 20130930
  2. NORTRIPTYLINE [Concomitant]
     Indication: STRESS
  3. GABAPENTIN [Concomitant]
     Indication: ANTIDEPRESSANT THERAPY

REACTIONS (2)
  - Headache [Not Recovered/Not Resolved]
  - Blood pressure increased [Not Recovered/Not Resolved]
